FAERS Safety Report 7121651-X (Version None)
Quarter: 2010Q4

REPORT INFORMATION
  Report Type: 
  Country: None (occurrence: None)
  Receive Date: 20101124
  Receipt Date: 20101122
  Transmission Date: 20110411
  Serious: Yes (Other)
  Sender: FDA-Public Use
  Company Number: US-PFIZER INC-2010155079

PATIENT
  Sex: Female
  Weight: 53 kg

DRUGS (3)
  1. CHANTIX [Suspect]
     Indication: SMOKING CESSATION THERAPY
     Dosage: 0.5 MG, DAILY
     Route: 048
     Dates: start: 20101113, end: 20101117
  2. PROZAC [Concomitant]
     Indication: DEPRESSION
     Dosage: 40MG
  3. LISDEXAMFETAMINE DIMESYLATE [Concomitant]
     Dosage: UNK

REACTIONS (3)
  - AGITATION [None]
  - ANXIETY [None]
  - PANIC ATTACK [None]
